FAERS Safety Report 17776945 (Version 2)
Quarter: 2020Q3

REPORT INFORMATION
  Report Type: Spontaneous
  Country: JP (occurrence: JP)
  Receive Date: 20200513
  Receipt Date: 20200805
  Transmission Date: 20201102
  Serious: Yes (Hospitalization, Other)
  Sender: FDA-Public Use
  Company Number: JP-ACCORD-181218

PATIENT
  Age: 47 Year
  Sex: Female

DRUGS (4)
  1. ATORVASTATIN/ATORVASTATIN CALCIUM [Suspect]
     Active Substance: ATORVASTATIN CALCIUM
     Indication: DYSLIPIDAEMIA
     Dosage: 10 MG/DAY
  2. METHYLPREDNISOLONE. [Suspect]
     Active Substance: METHYLPREDNISOLONE
     Indication: NEPHROTIC SYNDROME
     Dosage: PULSE INTRAVENOUS METHYLPREDNISOLONE (MPSL; 500 MG/DAY)
     Route: 042
  3. PREDNISOLONE. [Suspect]
     Active Substance: PREDNISOLONE
     Indication: NEPHROTIC SYNDROME
     Dosage: 40 MG/DAY
     Route: 048
  4. FUROSEMIDE. [Suspect]
     Active Substance: FUROSEMIDE
     Indication: FLUID RETENTION
     Dosage: 20 MG/DAY
     Route: 042

REACTIONS (2)
  - Pulmonary oedema [Recovering/Resolving]
  - Pancreatitis acute [Recovering/Resolving]
